FAERS Safety Report 9977537 (Version 1)
Quarter: 2014Q1

REPORT INFORMATION
  Report Type: Report from Study
  Country: US (occurrence: US)
  Receive Date: 20140306
  Receipt Date: 20140306
  Transmission Date: 20141002
  Serious: No
  Sender: FDA-Public Use
  Company Number: US-ABBVIE-13P-163-1162482-00

PATIENT
  Age: 44 Year
  Sex: Male

DRUGS (3)
  1. HUMIRA [Suspect]
     Indication: COLITIS ULCERATIVE
     Dates: start: 20130912
  2. APRISO [Concomitant]
     Indication: COLITIS ULCERATIVE
     Dosage: 0.375 GRAM, 4 CAPS EVERY MORNING
  3. MERCAPTOPURINE [Concomitant]
     Indication: COLITIS ULCERATIVE

REACTIONS (3)
  - Device malfunction [Recovered/Resolved]
  - Incorrect dose administered [Recovered/Resolved]
  - Inappropriate schedule of drug administration [Unknown]
